FAERS Safety Report 14079228 (Version 1)
Quarter: 2017Q4

REPORT INFORMATION
  Report Type: Report from Study
  Country: None (occurrence: AT)
  Receive Date: 20171012
  Receipt Date: 20171012
  Transmission Date: 20180321
  Serious: Yes (Hospitalization)
  Sender: FDA-Public Use
  Company Number: AT-ABBVIE-17K-009-1963359-00

PATIENT
  Age: 43 Year
  Sex: Male

DRUGS (2)
  1. DIABETEX [Concomitant]
     Indication: PRODUCT USED FOR UNKNOWN INDICATION
  2. HUMIRA [Suspect]
     Active Substance: ADALIMUMAB
     Indication: ANKYLOSING SPONDYLITIS
     Dosage: EVERY 3-4 WEEKS
     Route: 058
     Dates: start: 20121001

REACTIONS (2)
  - Treatment failure [Not Recovered/Not Resolved]
  - Pharyngeal cyst [Not Recovered/Not Resolved]

NARRATIVE: CASE EVENT DATE: 2017
